FAERS Safety Report 10641208 (Version 10)
Quarter: 2016Q4

REPORT INFORMATION
  Report Type: Spontaneous
  Country: US (occurrence: US)
  Receive Date: 20141209
  Receipt Date: 20161223
  Transmission Date: 20170206
  Serious: Yes (Death, Hospitalization, Other)
  Sender: FDA-Public Use
  Company Number: US-GLAXOSMITHKLINE-US2014GSK032758

PATIENT
  Age: 64 Year
  Sex: Male

DRUGS (9)
  1. WARFARIN [Concomitant]
     Active Substance: WARFARIN
  2. FLOLAN [Suspect]
     Active Substance: EPOPROSTENOL SODIUM
     Indication: COR PULMONALE CHRONIC
     Dosage: 3 NG/KG/MIN, CO
     Dates: start: 20141114
  3. FLOLAN [Suspect]
     Active Substance: EPOPROSTENOL SODIUM
     Indication: PULMONARY HYPERTENSION
     Dosage: UNK, CO
  4. FLOLAN [Suspect]
     Active Substance: EPOPROSTENOL SODIUM
     Indication: PULMONARY HYPERTENSION
  5. FLOLAN [Suspect]
     Active Substance: EPOPROSTENOL SODIUM
     Dosage: UNK, CO
     Dates: start: 20141117
  6. FLOLAN [Suspect]
     Active Substance: EPOPROSTENOL SODIUM
     Dosage: 8NG/KG/MIN (CONCENTRATION 15,000 NG/ML, PUMP RATE 85 ML/DAY, VIAL STRENGTH 1.5 MG) CO
     Route: 042
  7. FLOLAN [Suspect]
     Active Substance: EPOPROSTENOL SODIUM
     Dosage: 8.5 NG/KG/MIN, CONTINUOUS
     Route: 042
     Dates: start: 20141114
  8. FLOLAN [Suspect]
     Active Substance: EPOPROSTENOL SODIUM
     Dosage: 8.5 NG/KG/MIN, CONTINUOUS
     Route: 042
  9. FLOLAN [Suspect]
     Active Substance: EPOPROSTENOL SODIUM
     Dosage: UNK, CO
     Dates: start: 20141114

REACTIONS (13)
  - Death [Fatal]
  - Renal failure [Unknown]
  - Central venous catheterisation [Unknown]
  - Fluid retention [Unknown]
  - Device leakage [Unknown]
  - Rash erythematous [Not Recovered/Not Resolved]
  - Hospitalisation [Unknown]
  - Device dislocation [Unknown]
  - Suture insertion [Unknown]
  - Emergency care [Unknown]
  - International normalised ratio abnormal [Unknown]
  - Cardiac failure [Unknown]
  - International normalised ratio increased [Unknown]

NARRATIVE: CASE EVENT DATE: 20141215
